FAERS Safety Report 21145730 (Version 1)
Quarter: 2022Q3

REPORT INFORMATION
  Report Type: Spontaneous
  Country: CH (occurrence: CH)
  Receive Date: 20220729
  Receipt Date: 20220729
  Transmission Date: 20221026
  Serious: Yes (Other)
  Sender: FDA-Public Use
  Company Number: CH-BION-010868

PATIENT
  Age: 39 Year
  Sex: Female

DRUGS (3)
  1. LOPERAMIDE HYDROCHLORIDE [Suspect]
     Active Substance: LOPERAMIDE HYDROCHLORIDE
     Indication: Diarrhoea
     Dosage: PRN PRESCRIPTION, INCREASE TO 60 MG/D
  2. VENLAFAXINE [Concomitant]
     Active Substance: VENLAFAXINE HYDROCHLORIDE
     Indication: Depression
  3. ESCITALOPRAM [Concomitant]
     Active Substance: ESCITALOPRAM OXALATE
     Indication: Depression

REACTIONS (8)
  - Substance use disorder [Unknown]
  - Drug withdrawal syndrome [Unknown]
  - Irritability [Unknown]
  - Mydriasis [Unknown]
  - Rhinorrhoea [Unknown]
  - Electrocardiogram QT prolonged [Unknown]
  - Drug dependence [Unknown]
  - Anxiety [Unknown]
